FAERS Safety Report 5025171-8 (Version None)
Quarter: 2006Q2

REPORT INFORMATION
  Report Type: 
  Country: None (occurrence: None)
  Receive Date: 20060613
  Receipt Date: 20060609
  Transmission Date: 20061013
  Serious: Yes (Other)
  Sender: FDA-Public Use
  Company Number: US-GLAXOSMITHKLINE-A0608482A

PATIENT
  Age: 68 Year
  Sex: Female

DRUGS (8)
  1. WELLBUTRIN [Suspect]
     Indication: ANXIETY
     Dosage: 150MG PER DAY
     Route: 048
     Dates: start: 20060401, end: 20060514
  2. WELLBUTRIN [Suspect]
     Dosage: 300MG PER DAY
     Route: 048
     Dates: start: 20060515, end: 20060516
  3. WELLBUTRIN [Suspect]
     Dosage: 150MG PER DAY
     Route: 048
     Dates: start: 20060517, end: 20060519
  4. WELLBUTRIN [Suspect]
     Dosage: 100MG PER DAY
     Route: 048
     Dates: start: 20060517, end: 20060526
  5. SINEMET [Concomitant]
  6. MIRAPEX [Concomitant]
  7. XANAX [Concomitant]
  8. ZOLOFT [Concomitant]

REACTIONS (5)
  - MYALGIA [None]
  - PARKINSONISM [None]
  - SYMPTOM MASKED [None]
  - TINNITUS [None]
  - TREMOR [None]
